FAERS Safety Report 6962314-0 (Version None)
Quarter: 2010Q3

REPORT INFORMATION
  Report Type: 
  Country: None (occurrence: None)
  Receive Date: 20100902
  Receipt Date: 20100820
  Transmission Date: 20110219
  Serious: Yes (Other)
  Sender: FDA-Public Use
  Company Number: NZ-ELI_LILLY_AND_COMPANY-NZ201002002860

PATIENT
  Sex: Male

DRUGS (6)
  1. ZYPREXA [Suspect]
     Indication: SCHIZOPHRENIA
     Dosage: UNK, UNK
     Dates: start: 20040801
  2. ZYPREXA [Suspect]
     Dosage: 20 MG, UNK
     Dates: end: 20081208
  3. ZYPREXA [Suspect]
     Dosage: 15 MG, DAILY (1/D)
     Route: 048
     Dates: start: 20081209
  4. ARIPIPRAZOLE [Concomitant]
     Indication: SCHIZOPHRENIA
     Dosage: 10 MG, UNK
     Dates: start: 20081209
  5. LITHIUM [Concomitant]
     Indication: SCHIZOPHRENIA
     Dosage: 1.75 G, DAILY (1/D)
     Dates: start: 20091001
  6. ZIPRASIDONE HCL [Concomitant]
     Dates: start: 20080101, end: 20080101

REACTIONS (8)
  - ABNORMAL BEHAVIOUR [None]
  - ELEVATED MOOD [None]
  - INCREASED APPETITE [None]
  - MENTAL DISORDER [None]
  - SEDATION [None]
  - TYPE 2 DIABETES MELLITUS [None]
  - WEIGHT DECREASED [None]
  - WEIGHT INCREASED [None]
